FAERS Safety Report 4598713-4 (Version None)
Quarter: 2005Q1

REPORT INFORMATION
  Report Type: 
  Country: None (occurrence: None)
  Receive Date: 20050302
  Receipt Date: 20050214
  Transmission Date: 20050727
  Serious: Yes (Hospitalization)
  Sender: FDA-Public Use
  Company Number: 205825

PATIENT
  Age: 49 Year
  Sex: Male

DRUGS (22)
  1. AVONEX [Suspect]
     Indication: MULTIPLE SCLEROSIS
     Dosage: 30 UG;QW; IM
     Route: 030
     Dates: start: 20040818, end: 20041004
  2. BACLOFEN [Concomitant]
  3. ZYRTEC [Concomitant]
  4. KLONOPIN [Concomitant]
  5. COPAXONE [Concomitant]
  6. ACIPHEX [Concomitant]
  7. ADVAIR DISKUS 100/50 [Concomitant]
  8. CRESTOR [Concomitant]
  9. EFFEXOR [Concomitant]
  10. TOPROL-XL [Concomitant]
  11. LISINOPRIL [Concomitant]
  12. ASPIRIN [Concomitant]
  13. CENTRUM VITAMINS [Concomitant]
  14. VITAMIN B-12 [Concomitant]
  15. ALBUTEROL [Concomitant]
  16. TYLENOL (CAPLET) [Concomitant]
  17. PERCOCET [Concomitant]
  18. PHENERGAN EXPECTORANT W/ CODEINE [Concomitant]
  19. LACTULOSE [Concomitant]
  20. LASIX [Concomitant]
  21. AMBIEN [Concomitant]
  22. ULTRAM [Concomitant]

REACTIONS (2)
  - HYPERTENSIVE CRISIS [None]
  - MULTIPLE SCLEROSIS RELAPSE [None]
